FAERS Safety Report 7559065-0 (Version None)
Quarter: 2011Q2

REPORT INFORMATION
  Report Type: 
  Country: None (occurrence: None)
  Receive Date: 20110613
  Receipt Date: 20110530
  Transmission Date: 20111010
  Serious: Yes (Death, Hospitalization)
  Sender: FDA-Public Use
  Company Number: IR-ACCORD-009435

PATIENT
  Age: 33 Year
  Sex: Female

DRUGS (3)
  1. MYCOPHENOLATE MOFETIL [Suspect]
     Indication: PRODUCT USED FOR UNKNOWN INDICATION
     Dosage: 1000.00-MG-2.00 TIMES PER-1.0 DAYS
     Route: 048
  2. CYCLOSPORINE [Suspect]
     Indication: PRODUCT USED FOR UNKNOWN INDICATION
     Dosage: 175.00-MG-1.0DAYS
  3. PREDNISOLONE [Suspect]
     Indication: PRODUCT USED FOR UNKNOWN INDICATION
     Dosage: 5.00-MG-1.0DAYS

REACTIONS (3)
  - CEREBRAL ASPERGILLOSIS [None]
  - ENCEPHALITIS [None]
  - MENINGITIS TUBERCULOUS [None]
